FAERS Safety Report 8536451-3 (Version None)
Quarter: 2012Q3

REPORT INFORMATION
  Report Type: 
  Country: None (occurrence: None)
  Receive Date: 20120712
  Receipt Date: 20110705
  Transmission Date: 20120928
  Serious: Yes (Hospitalization)
  Sender: FDA-Public Use
  Company Number: PYR-11-13

PATIENT
  Age: 32 Year
  Sex: Female

DRUGS (4)
  1. RIFAMPICIN [Concomitant]
  2. PYRAZINAMIDE [Suspect]
     Indication: TUBERCULOSIS
  3. ISONIAZID [Concomitant]
  4. ETHAMBUTOL HYDROCHLORIDE [Concomitant]

REACTIONS (1)
  - HEPATOTOXICITY [None]
